FAERS Safety Report 4817604-4 (Version None)
Quarter: 2005Q4

REPORT INFORMATION
  Report Type: 
  Country: None (occurrence: None)
  Receive Date: 20051031
  Receipt Date: 20051017
  Transmission Date: 20060501
  Serious: Yes (Hospitalization)
  Sender: FDA-Public Use
  Company Number: 2005ADE/DICLO-008

PATIENT
  Age: 40 Year
  Sex: Male

DRUGS (6)
  1. DICLOFENAC (DICLOFENAC) [Suspect]
     Indication: ARTHRALGIA
     Dosage: 100MG
  2. MEPHENAMINE ACID    (MEFENAMIC ACID) [Suspect]
     Dosage: 500 MG
  3. FUROSEMIDE [Concomitant]
  4. DIGOXIN [Concomitant]
  5. ACE INHIBITORS PLAIN [Concomitant]
  6. BETA BLOCKING AGENTS [Concomitant]

REACTIONS (9)
  - BUNDLE BRANCH BLOCK LEFT [None]
  - CARDIAC FAILURE [None]
  - CONDITION AGGRAVATED [None]
  - DILATATION ATRIAL [None]
  - DILATATION VENTRICULAR [None]
  - PULMONARY ARTERIAL PRESSURE INCREASED [None]
  - PULMONARY CONGESTION [None]
  - TRICUSPID VALVE INCOMPETENCE [None]
  - VENTRICULAR HYPERTROPHY [None]
